FAERS Safety Report 9013847 (Version 2)
Quarter: 2013Q4

REPORT INFORMATION
  Report Type: Spontaneous
  Country: IT (occurrence: IT)
  Receive Date: 20130115
  Receipt Date: 20131118
  Transmission Date: 20140711
  Serious: Yes (Other)
  Sender: FDA-Public Use
  Company Number: IT-AMGEN-ITASP2013001772

PATIENT
  Age: 45 Year
  Sex: Female

DRUGS (4)
  1. VECTIBIX [Suspect]
     Indication: METASTATIC GASTRIC CANCER
     Dosage: UNK
     Route: 065
  2. 5 FU [Concomitant]
     Indication: METASTATIC GASTRIC CANCER
     Dosage: UNK
  3. FOLINIC ACID [Concomitant]
     Indication: METASTATIC GASTRIC CANCER
     Dosage: UNK
  4. OXALIPLATIN [Concomitant]
     Indication: METASTATIC GASTRIC CANCER
     Dosage: UNK

REACTIONS (3)
  - Trichomegaly [Unknown]
  - Hypertrichosis [Unknown]
  - Rash pustular [Unknown]
